FAERS Safety Report 25202155 (Version 1)
Quarter: 2025Q2

REPORT INFORMATION
  Report Type: Spontaneous
  Country: RU (occurrence: RU)
  Receive Date: 20250416
  Receipt Date: 20250416
  Transmission Date: 20250716
  Serious: Yes (Other)
  Sender: ALEXION PHARMACEUTICALS
  Company Number: RU-ASTRAZENECA-202504RUS008449RU

PATIENT

DRUGS (2)
  1. OLAPARIB [Suspect]
     Active Substance: OLAPARIB
     Indication: Neoplasm malignant
     Route: 065
  2. CARBOPLATIN [Concomitant]
     Active Substance: CARBOPLATIN
     Route: 065

REACTIONS (4)
  - Metastases to lung [Not Recovered/Not Resolved]
  - Drug ineffective [Unknown]
  - Metastases to lymph nodes [Not Recovered/Not Resolved]
  - Retroperitoneal neoplasm metastatic [Not Recovered/Not Resolved]
